FAERS Safety Report 10412848 (Version 1)
Quarter: 2014Q2

REPORT INFORMATION
  Report Type: Spontaneous
  Country: US (occurrence: None)
  Receive Date: 20140604
  Receipt Date: 20140604
  Transmission Date: 20141212
  Serious: Yes (Hospitalization)
  Sender: FDA-Public Use
  Company Number: 20120815CINRY3266

PATIENT
  Age: 41 Year
  Sex: Female

DRUGS (8)
  1. CINRYZE [Suspect]
     Indication: HEREDITARY ANGIOEDEMA
     Dosage: 1 IN 4D
  2. CINRYZE [Suspect]
     Indication: PROPHYLAXIS
     Dosage: 1 IN 4D
  3. DANAZOL (DANAZOL) [Concomitant]
  4. NORVASC (AMLODIPINE BESILATE) [Concomitant]
  5. METHADONE (METHADONE) [Concomitant]
  6. NORCO (VICODIN) [Concomitant]
  7. XANAX (ALPRAZOLAM) [Concomitant]
  8. PHENERGAN (PROMETHAZINE) [Concomitant]

REACTIONS (2)
  - Hereditary angioedema [None]
  - Drug dose omission [None]
